FAERS Safety Report 4923214-0 (Version None)
Quarter: 2006Q1

REPORT INFORMATION
  Report Type: 
  Country: None (occurrence: None)
  Receive Date: 20060127
  Receipt Date: 20051212
  Transmission Date: 20060701
  Serious: Yes (Other)
  Sender: FDA-Public Use
  Company Number: 2005139334

PATIENT
  Age: 78 Year
  Sex: Female
  Weight: 68.9467 kg

DRUGS (3)
  1. LYRICA [Suspect]
     Indication: ILL-DEFINED DISORDER
     Dosage: 150 MG (75 MG, 2 IN 1 D), ORAL
     Route: 048
     Dates: start: 20050901
  2. TYLENOL [Concomitant]
  3. ALL OTHER THERAPEUTIC PRODUCTS [Concomitant]

REACTIONS (6)
  - ABDOMINAL DISTENSION [None]
  - CHEST PAIN [None]
  - CONSTIPATION [None]
  - INSOMNIA [None]
  - PYREXIA [None]
  - STOMACH DISCOMFORT [None]
